FAERS Safety Report 17900467 (Version 1)
Quarter: 2020Q2

REPORT INFORMATION
  Report Type: Spontaneous
  Country: US (occurrence: US)
  Receive Date: 20200616
  Receipt Date: 20200616
  Transmission Date: 20200714
  Serious: No
  Sender: FDA-Public Use
  Company Number: US-ASTRAZENECA-2020SE67411

PATIENT
  Age: 758 Month
  Sex: Female
  Weight: 114.8 kg

DRUGS (2)
  1. BYDUREON BCISE [Suspect]
     Active Substance: EXENATIDE
     Indication: TYPE 2 DIABETES MELLITUS
     Route: 058
     Dates: start: 202002
  2. ELIQUIS [Concomitant]
     Active Substance: APIXABAN
     Indication: URINARY BLADDER HAEMORRHAGE
     Dosage: TWICE A DAY

REACTIONS (6)
  - Injection site bruising [Recovering/Resolving]
  - Injection site pain [Recovered/Resolved]
  - Injection site haematoma [Unknown]
  - Device leakage [Unknown]
  - Injection site mass [Unknown]
  - Erythema [Recovering/Resolving]

NARRATIVE: CASE EVENT DATE: 202002
